FAERS Safety Report 5751273-4 (Version None)
Quarter: 2008Q2

REPORT INFORMATION
  Report Type: 
  Country: None (occurrence: None)
  Receive Date: 20080528
  Receipt Date: 20080520
  Transmission Date: 20081010
  Serious: Yes (Death, Hospitalization)
  Sender: FDA-Public Use
  Company Number: US-PFIZER INC-2008043849

PATIENT
  Sex: Female
  Weight: 41 kg

DRUGS (13)
  1. UNASYN [Suspect]
     Indication: CHOLECYSTITIS INFECTIVE
     Dosage: FREQ:DAILY
     Route: 042
     Dates: start: 20070601, end: 20070601
  2. CREON [Suspect]
     Indication: COELIAC DISEASE
     Dosage: TEXT:12 DF
     Route: 048
     Dates: start: 19890101, end: 20070601
  3. CREON [Suspect]
     Dosage: TEXT:12 DF
     Route: 048
     Dates: start: 20070601, end: 20070601
  4. COUMADIN [Concomitant]
  5. SYNTHROID [Concomitant]
     Dates: end: 20070101
  6. VITAMIN D [Concomitant]
     Dates: end: 20070101
  7. VITAMIN E [Concomitant]
     Dates: end: 20070601
  8. DIOVANE [Concomitant]
     Dates: end: 20070101
  9. PERCOCET [Concomitant]
     Dates: end: 20070101
  10. ALL OTHER THERAPEUTIC PRODUCTS [Concomitant]
     Dates: end: 20070101
  11. ATIVAN [Concomitant]
     Dates: end: 20070101
  12. PROCRIT [Concomitant]
     Dates: end: 20070101
  13. FAT/CARBOHYDRATES/PROTEINS/MINERALS/VITAMINS, [Concomitant]
     Dates: end: 20070101

REACTIONS (7)
  - CARDIAC ARREST [None]
  - CARDIAC FAILURE CONGESTIVE [None]
  - GALLBLADDER DISORDER [None]
  - HYDROCEPHALUS [None]
  - MALNUTRITION [None]
  - MYOCARDIAL INFARCTION [None]
  - OEDEMA [None]
